FAERS Safety Report 6529589-3 (Version None)
Quarter: 2010Q1

REPORT INFORMATION
  Report Type: 
  Country: None (occurrence: None)
  Receive Date: 20100104
  Receipt Date: 20091225
  Transmission Date: 20100710
  Serious: Yes (Death)
  Sender: FDA-Public Use
  Company Number: 2009US004501

PATIENT
  Age: 72 Year
  Sex: Male

DRUGS (2)
  1. AMBISOME [Suspect]
     Indication: OESOPHAGEAL CARCINOMA
     Dosage: 150 MG, UID/QD, IV NOS
     Route: 042
     Dates: start: 20091201
  2. PRODIF (FOSFLUCONAZOLE) [Concomitant]

REACTIONS (1)
  - DEATH [None]
